FAERS Safety Report 15889635 (Version 2)
Quarter: 2019Q1

REPORT INFORMATION
  Report Type: Spontaneous
  Country: US (occurrence: US)
  Receive Date: 20190130
  Receipt Date: 20190206
  Transmission Date: 20190417
  Serious: Yes (Other)
  Sender: FDA-Public Use
  Company Number: US-ASTRAZENECA-2018SF15063

PATIENT
  Sex: Male

DRUGS (17)
  1. NEXIUM [Suspect]
     Active Substance: ESOMEPRAZOLE MAGNESIUM
     Route: 048
     Dates: start: 200404, end: 201412
  2. AMITIZA [Concomitant]
     Active Substance: LUBIPROSTONE
  3. NORVASC [Concomitant]
     Active Substance: AMLODIPINE BESYLATE
     Dates: start: 20090423
  4. GLYCOLAX [Concomitant]
     Active Substance: POLYETHYLENE GLYCOL 3350
     Dates: start: 20060228
  5. ALTACE [Concomitant]
     Active Substance: RAMIPRIL
     Dates: start: 20040419
  6. CLINDAMYCIN. [Concomitant]
     Active Substance: CLINDAMYCIN
     Dates: start: 20040319
  7. NOVOLOG [Concomitant]
     Active Substance: INSULIN ASPART
  8. REGLAN [Concomitant]
     Active Substance: METOCLOPRAMIDE HYDROCHLORIDE
  9. LIPITOR [Concomitant]
     Active Substance: ATORVASTATIN CALCIUM
  10. ZITHROMAX [Concomitant]
     Active Substance: AZITHROMYCIN DIHYDRATE
     Dates: start: 20050809
  11. TEQUIN [Concomitant]
     Active Substance: GATIFLOXACIN
     Dates: start: 20040419
  12. ETHEZYME [Concomitant]
     Dates: start: 20050914
  13. ZYVOX [Concomitant]
     Active Substance: LINEZOLID
     Dates: start: 20050914
  14. NEXIUM [Suspect]
     Active Substance: ESOMEPRAZOLE MAGNESIUM
     Dosage: 40 MG
     Route: 048
     Dates: start: 20040419
  15. ZELNORM [Concomitant]
     Active Substance: TEGASEROD MALEATE
     Dates: start: 20051013
  16. TOBREX [Concomitant]
     Active Substance: TOBRAMYCIN
     Dates: start: 20050218
  17. LEVEMIR [Concomitant]
     Active Substance: INSULIN DETEMIR

REACTIONS (3)
  - Renal failure [Unknown]
  - End stage renal disease [Unknown]
  - Chronic kidney disease [Unknown]
